FAERS Safety Report 13384978 (Version 1)
Quarter: 2017Q1

REPORT INFORMATION
  Report Type: Spontaneous
  Country: US (occurrence: US)
  Receive Date: 20170329
  Receipt Date: 20170329
  Transmission Date: 20170429
  Serious: No
  Sender: FDA-Public Use
  Company Number: US-ELI_LILLY_AND_COMPANY-US201607007767

PATIENT
  Sex: Male

DRUGS (1)
  1. CYMBALTA [Suspect]
     Active Substance: DULOXETINE HYDROCHLORIDE
     Indication: DEPRESSION
     Dosage: UNK, UNKNOWN
     Route: 048
     Dates: start: 20130919

REACTIONS (8)
  - Drug withdrawal syndrome [Unknown]
  - Altered state of consciousness [Unknown]
  - Impulse-control disorder [Unknown]
  - Sleep disorder [Unknown]
  - Road traffic accident [Unknown]
  - Chills [Unknown]
  - Anxiety [Unknown]
  - Hyperhidrosis [Unknown]
